FAERS Safety Report 19815440 (Version 1)
Quarter: 2021Q3

REPORT INFORMATION
  Report Type: Spontaneous
  Country: US (occurrence: US)
  Receive Date: 20210910
  Receipt Date: 20210910
  Transmission Date: 20211014
  Serious: No
  Sender: FDA-Public Use
  Company Number: None

PATIENT
  Age: 36 Year
  Sex: Female
  Weight: 58.5 kg

DRUGS (1)
  1. BAMLANIVIMAB + ETESEVIMAB [Suspect]
     Active Substance: BAMLANIVIMAB\ETESEVIMAB
     Indication: SARS-COV-2 TEST POSITIVE
     Dates: start: 20210909, end: 20210909

REACTIONS (3)
  - Drug dispensed to wrong patient [None]
  - Drug monitoring procedure not performed [None]
  - Wrong product administered [None]

NARRATIVE: CASE EVENT DATE: 20210909
